FAERS Safety Report 24750672 (Version 1)
Quarter: 2024Q4

REPORT INFORMATION
  Report Type: Spontaneous
  Country: FR (occurrence: FR)
  Receive Date: 20241218
  Receipt Date: 20241218
  Transmission Date: 20250115
  Serious: Yes (Other)
  Sender: Haleon PLC
  Company Number: None

PATIENT
  Age: 36 Year
  Sex: Female

DRUGS (1)
  1. IBUPROFEN [Suspect]
     Active Substance: IBUPROFEN
     Indication: Product used for unknown indication
     Dosage: TIME INTERVAL: TOTAL: 1 PRISE
     Route: 048
     Dates: start: 20190608, end: 20190608

REACTIONS (3)
  - Angioedema [Recovered/Resolved]
  - Urticaria [Recovered/Resolved]
  - Laryngeal discomfort [Recovered/Resolved]

NARRATIVE: CASE EVENT DATE: 20190608
